FAERS Safety Report 7237249-9 (Version None)
Quarter: 2011Q1

REPORT INFORMATION
  Report Type: 
  Country: None (occurrence: None)
  Receive Date: 20110121
  Receipt Date: 20110112
  Transmission Date: 20110831
  Serious: Yes (Death, Hospitalization, Other)
  Sender: FDA-Public Use
  Company Number: JP-AMGEN-JPNCT2010001240

PATIENT

DRUGS (15)
  1. HERBAL PREPARATION [Concomitant]
     Route: 048
  2. FLIVAS [Concomitant]
     Route: 048
  3. PANITUMUMAB [Suspect]
     Indication: COLORECTAL CANCER
     Dosage: 6 MG/KG, Q2WK
     Route: 041
     Dates: start: 20100914, end: 20101012
  4. FLUOROURACIL [Concomitant]
     Indication: COLORECTAL CANCER
     Route: 040
     Dates: start: 20100904, end: 20101012
  5. BLOPRESS [Concomitant]
     Route: 048
  6. ZYLORIC [Concomitant]
     Route: 048
  7. MAINTATE [Concomitant]
     Route: 048
  8. CALCIUM LEVOFOLINATE [Concomitant]
     Indication: COLORECTAL CANCER
     Route: 041
     Dates: start: 20100904, end: 20101012
  9. PARIET [Concomitant]
     Route: 048
  10. CAMPTOSAR [Suspect]
     Indication: COLORECTAL CANCER
     Route: 041
     Dates: start: 20100904, end: 20101012
  11. FLUOROURACIL [Concomitant]
     Route: 041
     Dates: start: 20100904, end: 20101012
  12. GRANISETRON HCL [Concomitant]
     Route: 065
  13. LOXONIN [Concomitant]
     Route: 048
  14. EVIPROSTAT [Concomitant]
     Route: 048
  15. FLUITRAN [Concomitant]
     Route: 048

REACTIONS (5)
  - PARONYCHIA [None]
  - PANCYTOPENIA [None]
  - SEPSIS [None]
  - DERMATITIS ACNEIFORM [None]
  - DIARRHOEA [None]
